FAERS Safety Report 22100469 (Version 1)
Quarter: 2023Q1

REPORT INFORMATION
  Report Type: Spontaneous
  Country: CN (occurrence: CN)
  Receive Date: 20230316
  Receipt Date: 20230316
  Transmission Date: 20230418
  Serious: Yes (Hospitalization, Other)
  Sender: FDA-Public Use
  Company Number: None

PATIENT
  Age: 5 Year
  Sex: Male
  Weight: 17.8 kg

DRUGS (10)
  1. CYCLOPHOSPHAMIDE [Suspect]
     Active Substance: CYCLOPHOSPHAMIDE
     Indication: Acute lymphocytic leukaemia
     Dosage: 690 MG, QD (DILUTED WITH 0.9% SODIUM CHLORIDE 100 ML)
     Route: 041
     Dates: start: 20230220, end: 20230220
  2. SODIUM CHLORIDE [Suspect]
     Active Substance: SODIUM CHLORIDE
     Indication: Medication dilution
     Dosage: 100 ML, QD, DOSAGE FORM: INJECTION, CONCENTRATION: 0.9% (USED TO DILUTE CYCLOPHOSPHAMIDE 690 MG)
     Route: 041
     Dates: start: 20230220, end: 20230220
  3. SODIUM CHLORIDE [Suspect]
     Active Substance: SODIUM CHLORIDE
     Dosage: 100 ML, QD, DOSAGE FORM: INJECTION, CONCENTRATION: 0.9% (USED TO DILUTE VINCRISTINE SULFATE 1 MG)
     Route: 041
     Dates: start: 20230218, end: 20230218
  4. SODIUM CHLORIDE [Suspect]
     Active Substance: SODIUM CHLORIDE
     Dosage: 100 ML, QD, DOSAGE FORM: INJECTION, CONCENTRATION: 0.9% (USED TO DILUTE DAUNORUBICIN 20.7 MG)
     Route: 041
     Dates: start: 20230218, end: 20230218
  5. SODIUM CHLORIDE [Suspect]
     Active Substance: SODIUM CHLORIDE
     Dosage: 36 ML, QD, DOSAGE FORM: INJECTION, CONCENTRATION: 0.9% (USED TO DILUTE CYTARABINE 30 MG AND METHOTRE
     Route: 037
     Dates: start: 20230218, end: 20230218
  6. PEGASPARGASE [Suspect]
     Active Substance: PEGASPARGASE
     Indication: Acute lymphocytic leukaemia
     Dosage: 1725 IU, QD
     Route: 030
     Dates: start: 20230219, end: 20230219
  7. METHOTREXATE [Suspect]
     Active Substance: METHOTREXATE
     Indication: Acute lymphocytic leukaemia
     Dosage: 12 MG, QD (COMBINED WITH CYTARABINE 30 MG AND DILUTED WITH SODIUM CHLORIDE 36 ML)
     Route: 037
     Dates: start: 20230218, end: 20230218
  8. DAUNORUBICIN HYDROCHLORIDE [Suspect]
     Active Substance: DAUNORUBICIN HYDROCHLORIDE
     Indication: Acute lymphocytic leukaemia
     Dosage: 20.7 MG, QD (DILUTED WITH 0.9% SODIUM CHLORIDE 100 ML)
     Route: 041
     Dates: start: 20230218, end: 20230218
  9. CYTARABINE HYDROCHLORIDE [Suspect]
     Active Substance: CYTARABINE HYDROCHLORIDE
     Indication: Acute lymphocytic leukaemia
     Dosage: 30 MG, QD (COMBINED WITH METHOTREXATE 12 MG AND DILUTED WITH SODIUM CHLORIDE 36 ML)
     Route: 037
     Dates: start: 20230218, end: 20230218
  10. VINCRISTINE SULFATE [Suspect]
     Active Substance: VINCRISTINE SULFATE
     Indication: Acute lymphocytic leukaemia
     Dosage: 1 MG, QD (DILUTED WITH 0.9% SODIUM CHLORIDE 100 ML)
     Route: 041
     Dates: start: 20230218, end: 20230218

REACTIONS (2)
  - Myelosuppression [Unknown]
  - Platelet count decreased [Unknown]

NARRATIVE: CASE EVENT DATE: 20230228
